FAERS Safety Report 7343578-0 (Version None)
Quarter: 2011Q1

REPORT INFORMATION
  Report Type: 
  Country: None (occurrence: None)
  Receive Date: 20110310
  Receipt Date: 20100528
  Transmission Date: 20110831
  Serious: No
  Sender: FDA-Public Use
  Company Number: A0861942A

PATIENT
  Sex: Female

DRUGS (2)
  1. NICORETTE [Suspect]
  2. NICORETTE [Suspect]

REACTIONS (8)
  - SALIVA DISCOLOURATION [None]
  - DRUG ADMINISTRATION ERROR [None]
  - PRODUCTIVE COUGH [None]
  - HEADACHE [None]
  - MALAISE [None]
  - NICOTINE DEPENDENCE [None]
  - HICCUPS [None]
  - NAUSEA [None]
